FAERS Safety Report 5379381-0 (Version None)
Quarter: 2007Q3

REPORT INFORMATION
  Report Type: 
  Country: None (occurrence: None)
  Receive Date: 20070703
  Receipt Date: 20070619
  Transmission Date: 20080115
  Serious: Yes (Hospitalization, Other)
  Sender: FDA-Public Use
  Company Number: 2007S1000260

PATIENT
  Age: 32 Year
  Sex: Male

DRUGS (3)
  1. CUBICIN [Suspect]
     Indication: PYOMYOSITIS
     Dosage: 6 MG/KG
  2. CUBICIN [Suspect]
     Indication: STAPHYLOCOCCAL ABSCESS
     Dosage: 6 MG/KG
  3. HIV MEDICATIONS [Concomitant]

REACTIONS (8)
  - CARDIAC VALVE VEGETATION [None]
  - CATHETER SEPSIS [None]
  - FEBRILE NEUTROPENIA [None]
  - PATHOGEN RESISTANCE [None]
  - SCROTAL ABSCESS [None]
  - STAPHYLOCOCCAL SEPSIS [None]
  - THROMBOPHLEBITIS [None]
  - TRICUSPID VALVE DISEASE [None]
